FAERS Safety Report 9038159 (Version 1)
Quarter: 2013Q1

REPORT INFORMATION
  Report Type: Spontaneous
  Country: US (occurrence: US)
  Receive Date: 20130129
  Receipt Date: 20130129
  Transmission Date: 20140127
  Serious: Yes (Other)
  Sender: FDA-Public Use
  Company Number: US-GLAXOSMITHKLINE-A0971375A

PATIENT
  Age: 46 Year
  Sex: Female
  Weight: 71.8 kg

DRUGS (3)
  1. WELLBUTRIN [Suspect]
     Indication: PRODUCT USED FOR UNKNOWN INDICATION
     Route: 065
  2. ZOCOR [Concomitant]
  3. LEXAPRO [Concomitant]

REACTIONS (2)
  - Suicidal ideation [Unknown]
  - Hypersensitivity [Unknown]
